FAERS Safety Report 4279437-X (Version None)
Quarter: 2004Q1

REPORT INFORMATION
  Report Type: 
  Country: None (occurrence: None)
  Receive Date: 20040123
  Receipt Date: 20040116
  Transmission Date: 20041129
  Serious: Yes (Hospitalization)
  Sender: FDA-Public Use
  Company Number: 2004194918FI

PATIENT
  Sex: Female

DRUGS (1)
  1. SULFASALAZINE [Suspect]
     Indication: ARTHRITIS
     Dosage: 1000 MG, BID, ORAL
     Route: 048
     Dates: start: 20031027, end: 20031121

REACTIONS (1)
  - NEUTROPENIA [None]
